FAERS Safety Report 13749324 (Version 1)
Quarter: 2017Q3

REPORT INFORMATION
  Report Type: Spontaneous
  Country: US (occurrence: US)
  Receive Date: 20170713
  Receipt Date: 20170713
  Transmission Date: 20171127
  Serious: Yes (Hospitalization)
  Sender: FDA-Public Use
  Company Number: None

PATIENT
  Age: 81 Year
  Sex: Male
  Weight: 91.9 kg

DRUGS (1)
  1. AZACITIDINE. [Suspect]
     Active Substance: AZACITIDINE
     Indication: ACUTE MYELOID LEUKAEMIA
     Route: 042
     Dates: start: 20170705, end: 20170707

REACTIONS (5)
  - Pneumonia [None]
  - Atelectasis [None]
  - Pyrexia [None]
  - Cough [None]
  - Neutropenia [None]

NARRATIVE: CASE EVENT DATE: 20170707
